FAERS Safety Report 5932364-1 (Version None)
Quarter: 2008Q4

REPORT INFORMATION
  Report Type: 
  Country: None (occurrence: None)
  Receive Date: 20081028
  Receipt Date: 20081022
  Transmission Date: 20090506
  Serious: Yes (Other)
  Sender: FDA-Public Use
  Company Number: JP-BRISTOL-MYERS SQUIBB COMPANY-14381966

PATIENT
  Age: 7 Decade
  Sex: Male

DRUGS (5)
  1. TAXOL [Suspect]
     Indication: LUNG ADENOCARCINOMA
     Route: 041
  2. PARAPLATIN [Suspect]
     Indication: LUNG ADENOCARCINOMA
     Route: 041
  3. CISPLATIN [Concomitant]
     Indication: LUNG ADENOCARCINOMA
     Route: 041
  4. TAXOTERE [Concomitant]
     Indication: LUNG ADENOCARCINOMA
     Route: 041
  5. RADIOTHERAPY [Concomitant]
     Indication: LUNG ADENOCARCINOMA
     Dosage: 69.2GRAY/32 FRACTIONS

REACTIONS (1)
  - INTERSTITIAL LUNG DISEASE [None]
